FAERS Safety Report 19939528 (Version 3)
Quarter: 2021Q4

REPORT INFORMATION
  Report Type: Spontaneous
  Country: PE (occurrence: None)
  Receive Date: 20211011
  Receipt Date: 20211106
  Transmission Date: 20220303
  Serious: Yes (Hospitalization, Other)
  Sender: FDA-Public Use
  Company Number: PE-ROCHE-2929741

PATIENT
  Age: 24 Year
  Sex: Male

DRUGS (6)
  1. CLONAZEPAM [Suspect]
     Active Substance: CLONAZEPAM
     Indication: Depression
     Route: 065
  2. ZOLOFT [Suspect]
     Active Substance: SERTRALINE HYDROCHLORIDE
     Indication: Depression
     Route: 065
     Dates: end: 20210913
  3. ATOMOXETINE HYDROCHLORIDE [Suspect]
     Active Substance: ATOMOXETINE HYDROCHLORIDE
     Indication: Nervous system disorder
     Route: 065
     Dates: start: 202108, end: 20210913
  4. ARIPIPRAZOLE [Suspect]
     Active Substance: ARIPIPRAZOLE
     Indication: Depression
     Dosage: 1/4 DF
     Route: 065
     Dates: end: 20210913
  5. WELLBUTRIN [Suspect]
     Active Substance: BUPROPION HYDROCHLORIDE
     Indication: Depression
     Route: 065
     Dates: end: 20210913
  6. LEVOTHYROXINE SODIUM [Concomitant]
     Active Substance: LEVOTHYROXINE SODIUM

REACTIONS (10)
  - Nausea [Recovering/Resolving]
  - Vomiting [Recovering/Resolving]
  - Hypothyroidism [Recovering/Resolving]
  - Fatigue [Recovering/Resolving]
  - Renal disorder [Recovering/Resolving]
  - Hypotension [Recovering/Resolving]
  - Polyglandular autoimmune syndrome type III [Recovering/Resolving]
  - Adrenal insufficiency [Recovering/Resolving]
  - Condition aggravated [Recovering/Resolving]
  - Somnolence [Unknown]
